FAERS Safety Report 17186601 (Version 2)
Quarter: 2020Q1

REPORT INFORMATION
  Report Type: Report from Study
  Country: None (occurrence: US)
  Receive Date: 20191220
  Receipt Date: 20200226
  Transmission Date: 20200409
  Serious: Yes (Other)
  Sender: FDA-Public Use
  Company Number: US-ABBVIE-19P-163-3196811-00

PATIENT
  Age: 50 Year
  Sex: Male

DRUGS (1)
  1. IMBRUVICA [Suspect]
     Active Substance: IBRUTINIB
     Indication: CHRONIC LYMPHOCYTIC LEUKAEMIA
     Route: 048
     Dates: start: 20180417

REACTIONS (3)
  - Dysphagia [Unknown]
  - Choking [Recovered/Resolved]
  - Endoscopy gastrointestinal [Recovered/Resolved]

NARRATIVE: CASE EVENT DATE: 20191010
